FAERS Safety Report 25459185 (Version 2)
Quarter: 2025Q3

REPORT INFORMATION
  Report Type: Spontaneous
  Country: EU (occurrence: EU)
  Receive Date: 20250620
  Receipt Date: 20250710
  Transmission Date: 20251020
  Serious: Yes (Death, Hospitalization)
  Sender: MERCK SHARP & DOHME LLC
  Company Number: None

PATIENT
  Age: 70 Year
  Sex: Male
  Weight: 94 kg

DRUGS (15)
  1. KEYTRUDA [Suspect]
     Active Substance: PEMBROLIZUMAB
     Indication: Bladder transitional cell carcinoma recurrent
     Route: 042
     Dates: start: 20250512, end: 20250512
  2. JARDIANCE [Concomitant]
     Active Substance: EMPAGLIFLOZIN
     Indication: Type 2 diabetes mellitus
     Route: 048
  3. CYANOCOBALAMIN [Concomitant]
     Active Substance: CYANOCOBALAMIN
     Indication: Vitamin supplementation
     Route: 048
  4. ACTISKENAN 30 mg, capsule [Concomitant]
     Indication: Pain
     Dosage: 30MG LP 1-0-1
     Route: 048
  5. CEFTRIAXONE SODIUM [Suspect]
     Active Substance: CEFTRIAXONE SODIUM
     Indication: Urinary tract infection
     Dosage: 2 MG, QD
     Route: 042
     Dates: start: 20250524, end: 20250527
  6. PADCEV [Suspect]
     Active Substance: ENFORTUMAB VEDOTIN-EJFV
     Indication: Bladder transitional cell carcinoma recurrent
     Route: 042
     Dates: start: 20250512, end: 20250512
  7. PADCEV [Suspect]
     Active Substance: ENFORTUMAB VEDOTIN-EJFV
     Indication: Bladder transitional cell carcinoma recurrent
     Route: 042
     Dates: start: 20250519, end: 20250519
  8. IRBESARTAN [Concomitant]
     Active Substance: IRBESARTAN
     Indication: Hypertension
     Route: 048
  9. APIXABAN [Concomitant]
     Active Substance: APIXABAN
     Indication: Atrial fibrillation
     Dosage: 2.5MG 1-0-1
     Route: 048
  10. BISOPROLOL FUMARATE [Concomitant]
     Active Substance: BISOPROLOL FUMARATE
     Indication: Heart failure with preserved ejection fraction
     Route: 048
  11. DIGOXIN [Concomitant]
     Active Substance: DIGOXIN
     Indication: Atrial fibrillation
     Route: 048
  12. PANTOPRAZOLE [Concomitant]
     Active Substance: PANTOPRAZOLE
     Indication: Product used for unknown indication
     Route: 048
  13. EZETIMIBE [Concomitant]
     Active Substance: EZETIMIBE
     Indication: Dyslipidaemia
     Route: 048
  14. GLICLAZIDE [Concomitant]
     Active Substance: GLICLAZIDE
     Indication: Type 2 diabetes mellitus
     Route: 048
  15. ROSUVASTATIN [Concomitant]
     Active Substance: ROSUVASTATIN
     Indication: Dyslipidaemia
     Route: 048

REACTIONS (1)
  - Dermatitis bullous [Fatal]

NARRATIVE: CASE EVENT DATE: 20250526
